FAERS Safety Report 15236884 (Version 1)
Quarter: 2018Q3

REPORT INFORMATION
  Report Type: Spontaneous
  Country: US (occurrence: US)
  Receive Date: 20180803
  Receipt Date: 20180803
  Transmission Date: 20181010
  Serious: No
  Sender: FDA-Public Use
  Company Number: US-SA-2018SA206045

PATIENT
  Sex: Male

DRUGS (7)
  1. DRYSOL [Concomitant]
     Active Substance: ALUMINUM CHLORIDE
  2. CUTIVATE [Concomitant]
     Active Substance: FLUTICASONE PROPIONATE
  3. FLUTICASONE PROPIONATE. [Concomitant]
     Active Substance: FLUTICASONE PROPIONATE
  4. HYLATOPICPLUS [Concomitant]
     Active Substance: EMOLLIENTS
  5. DUPIXENT [Suspect]
     Active Substance: DUPILUMAB
     Indication: DERMATITIS ATOPIC
     Dosage: 300 MG, QOW
     Route: 058
     Dates: start: 201712
  6. CLOBETASOL PROPIONATE. [Concomitant]
     Active Substance: CLOBETASOL PROPIONATE
  7. HYDROXYZINE HCL [Concomitant]
     Active Substance: HYDROXYZINE HYDROCHLORIDE

REACTIONS (3)
  - Therapeutic response decreased [Unknown]
  - Erythema [Unknown]
  - Rash papular [Unknown]
